FAERS Safety Report 10320385 (Version 2)
Quarter: 2014Q3

REPORT INFORMATION
  Report Type: Spontaneous
  Country: GB (occurrence: GB)
  Receive Date: 20140719
  Receipt Date: 20140719
  Transmission Date: 20150326
  Serious: Yes (Life-Threatening, Other)
  Sender: FDA-Public Use
  Company Number: ALCN2007GB003330

PATIENT
  Age: 47 Year
  Sex: Male

DRUGS (2)
  1. XALATAN [Suspect]
     Active Substance: LATANOPROST
     Route: 047
     Dates: start: 20050421
  2. TIMOLOL [Suspect]
     Active Substance: TIMOLOL
     Route: 047
     Dates: start: 20050421

REACTIONS (2)
  - Acrochordon [Not Recovered/Not Resolved]
  - Basal cell carcinoma [Not Recovered/Not Resolved]
